FAERS Safety Report 5482600-3 (Version None)
Quarter: 2007Q4

REPORT INFORMATION
  Report Type: 
  Country: None (occurrence: None)
  Receive Date: 20071011
  Receipt Date: 20070801
  Transmission Date: 20080405
  Serious: No
  Sender: FDA-Public Use
  Company Number: A0668412A

PATIENT
  Age: 48 Year
  Sex: Female

DRUGS (2)
  1. TYKERB [Suspect]
     Indication: DRUG USE FOR UNKNOWN INDICATION
     Route: 048
     Dates: start: 20070730
  2. XELODA [Suspect]
     Dates: start: 20070730

REACTIONS (4)
  - DIARRHOEA [None]
  - NAUSEA [None]
  - PRURITUS [None]
  - VOMITING [None]
